FAERS Safety Report 5779663-4 (Version None)
Quarter: 2008Q2

REPORT INFORMATION
  Report Type: 
  Country: None (occurrence: None)
  Receive Date: 20080619
  Receipt Date: 20080612
  Transmission Date: 20081010
  Serious: Yes (Hospitalization)
  Sender: FDA-Public Use
  Company Number: JP-PFIZER INC-2008050213

PATIENT
  Age: 63 Year
  Sex: Female

DRUGS (6)
  1. CARDENALIN [Suspect]
     Route: 048
  2. GLIMICRON [Concomitant]
     Route: 048
  3. QUINAPRIL HCL [Concomitant]
     Route: 048
  4. MICARDIS [Concomitant]
     Route: 048
  5. ETIZOLAM [Concomitant]
     Route: 048
  6. LENDORMIN [Concomitant]
     Route: 048

REACTIONS (2)
  - HYPOTENSION [None]
  - SUICIDE ATTEMPT [None]
